FAERS Safety Report 20073914 (Version 1)
Quarter: 2021Q4

REPORT INFORMATION
  Report Type: Spontaneous
  Country: AU (occurrence: AU)
  Receive Date: 20211116
  Receipt Date: 20211116
  Transmission Date: 20220304
  Serious: Yes (Other)
  Sender: FDA-Public Use
  Company Number: AU-MLMSERVICE-20211102-3194219-1

PATIENT
  Age: 36 Year
  Sex: Female

DRUGS (2)
  1. LETROZOLE [Suspect]
     Active Substance: LETROZOLE
     Indication: Invasive ductal breast carcinoma
  2. ZOLADEX [Suspect]
     Active Substance: GOSERELIN ACETATE
     Indication: Invasive ductal breast carcinoma
     Dates: end: 202012

REACTIONS (2)
  - Insomnia [Unknown]
  - Joint swelling [Unknown]
